FAERS Safety Report 24019800 (Version 2)
Quarter: 2024Q4

REPORT INFORMATION
  Report Type: Spontaneous
  Country: DE (occurrence: DE)
  Receive Date: 20240627
  Receipt Date: 20241110
  Transmission Date: 20250115
  Serious: Yes (Life-Threatening, Other)
  Sender: SANOFI AVENTIS
  Company Number: DE-DCGMA-24203482

PATIENT
  Age: 56 Year
  Sex: Male

DRUGS (2)
  1. DUPIXENT [Suspect]
     Active Substance: DUPILUMAB
     Indication: Dermatitis atopic
     Dosage: 300 MG
     Route: 058
  2. MOMETASONE FUROATE [Concomitant]
     Active Substance: MOMETASONE FUROATE
     Indication: Chronic rhinosinusitis with nasal polyps
     Dosage: 2X2
     Route: 045

REACTIONS (4)
  - Mitral valve prolapse [Unknown]
  - Acute endocarditis [Unknown]
  - Cerebral ischaemia [Unknown]
  - Cardiac operation [Unknown]

NARRATIVE: CASE EVENT DATE: 20231017
